FAERS Safety Report 20112145 (Version 3)
Quarter: 2022Q1

REPORT INFORMATION
  Report Type: Spontaneous
  Country: US (occurrence: US)
  Receive Date: 20211125
  Receipt Date: 20220104
  Transmission Date: 20220423
  Serious: Yes (Hospitalization, Other)
  Sender: FDA-Public Use
  Company Number: US-AMGEN-USASP2021183358

PATIENT
  Sex: Male

DRUGS (19)
  1. AIMOVIG [Suspect]
     Active Substance: ERENUMAB-AOOE
     Indication: Migraine
     Dosage: 140 MILLIGRAM
     Route: 065
     Dates: start: 20190204
  2. AIMOVIG [Suspect]
     Active Substance: ERENUMAB-AOOE
     Dosage: 140 MILLIGRAM
     Route: 065
     Dates: start: 202111
  3. PFIZER-BIONTECH COVID-19 VACCINE [Concomitant]
     Active Substance: TOZINAMERAN
     Dosage: UNK
     Route: 065
  4. PFIZER-BIONTECH COVID-19 VACCINE [Concomitant]
     Active Substance: TOZINAMERAN
     Dosage: UNK
     Route: 065
  5. PFIZER-BIONTECH COVID-19 VACCINE [Concomitant]
     Active Substance: TOZINAMERAN
     Dosage: UNK
     Route: 065
  6. AMBER (FOSSILIZED TREE RESIN) [Concomitant]
     Dosage: UNK
     Route: 065
  7. BACLOFEN [Concomitant]
     Active Substance: BACLOFEN
     Indication: Muscle relaxant therapy
     Dosage: 10 MILLIGRAM
     Route: 065
  8. BACLOFEN [Concomitant]
     Active Substance: BACLOFEN
     Indication: Migraine
  9. CLONAZEPAM [Concomitant]
     Active Substance: CLONAZEPAM
     Indication: Migraine prophylaxis
     Dosage: 2 MILLIGRAM (DAILY 4 TIMES A DAY)
     Route: 065
  10. CLONAZEPAM [Concomitant]
     Active Substance: CLONAZEPAM
     Dosage: 2 MILLIGRAM (CUT BACK PREVIOUSLY BUT BEGAN EXPERIENCING HEADACHES 36 OUT OF 42 DAYS AND OCCURRED TO
     Route: 065
  11. CLONAZEPAM [Concomitant]
     Active Substance: CLONAZEPAM
     Dosage: 2 MILLIGRAM (DAILY 4 TIMES A DAY)
     Route: 065
  12. DECADRON [Concomitant]
     Active Substance: DEXAMETHASONE
     Indication: Migraine
     Dosage: UNK
     Route: 065
  13. LIDOCAINE [Concomitant]
     Active Substance: LIDOCAINE
     Indication: Migraine
     Dosage: UNK
     Route: 065
  14. MARCAINE [Concomitant]
     Active Substance: BUPIVACAINE HYDROCHLORIDE
     Indication: Migraine
     Dosage: UNK
     Route: 065
  15. METOCLOPRAMIDE [Concomitant]
     Active Substance: METOCLOPRAMIDE
     Indication: Migraine
     Dosage: UNK (T ONSET 10MG 1 EVERY 4-6 HOURS USUALLY ONLY TAKES ONE AND IS WASTE OF TIME)
     Route: 065
  16. VENLAFAXINE HCL [Concomitant]
     Active Substance: VENLAFAXINE HYDROCHLORIDE
     Indication: Migraine prophylaxis
     Dosage: 150 MILLIGRAM, QD
     Route: 065
  17. SERTRALINE [Concomitant]
     Active Substance: SERTRALINE HYDROCHLORIDE
     Indication: Migraine prophylaxis
     Dosage: 25 MILLIGRAM ( 2 PER DAY TAKE BOTH AT NIGHT)
     Route: 065
  18. HYDROXYZINE [Concomitant]
     Active Substance: HYDROXYZINE HYDROCHLORIDE
     Indication: Sleep disorder
     Dosage: 25 MILLIGRAM, QD (AT NIGHT)
     Route: 065
  19. NASACORT [Concomitant]
     Active Substance: TRIAMCINOLONE ACETONIDE
     Indication: Hypersensitivity
     Dosage: UNK ( ONCE A DAY TWO SPRAYS A DAY IN EACH NOSTRIL DAILY AT NIGHT)
     Route: 065

REACTIONS (9)
  - Sepsis [Unknown]
  - Migraine [Unknown]
  - Forearm fracture [Unknown]
  - Limb operation [Unknown]
  - Rotator cuff syndrome [Unknown]
  - Wrist fracture [Unknown]
  - Tinnitus [Not Recovered/Not Resolved]
  - Tremor [Unknown]
  - Sleep disorder due to general medical condition, insomnia type [Unknown]

NARRATIVE: CASE EVENT DATE: 20080101
